FAERS Safety Report 11779975 (Version 1)
Quarter: 2015Q4

REPORT INFORMATION
  Report Type: Report from Study
  Country: BR (occurrence: BR)
  Receive Date: 20151125
  Receipt Date: 20151125
  Transmission Date: 20160304
  Serious: Yes (Death)
  Sender: FDA-Public Use
  Company Number: PHHY2015BR153943

PATIENT
  Sex: Male
  Weight: 80 kg

DRUGS (2)
  1. FORASEQ [Suspect]
     Active Substance: BUDESONIDE\FORMOTEROL FUMARATE
     Indication: EMPHYSEMA
     Dosage: 2 INHALATION/DAY QD
  2. EXELON PATCH [Suspect]
     Active Substance: RIVASTIGMINE
     Indication: DEMENTIA ALZHEIMER^S TYPE
     Dosage: 1 DF, QD
     Route: 062
     Dates: start: 20151114, end: 20151116

REACTIONS (2)
  - Ischaemia [Fatal]
  - Dementia Alzheimer^s type [Fatal]
